FAERS Safety Report 12346017 (Version 1)
Quarter: 2016Q2

REPORT INFORMATION
  Report Type: Spontaneous
  Country: IT (occurrence: None)
  Receive Date: 20160506
  Receipt Date: 20160506
  Transmission Date: 20160815
  Serious: Yes (Other)
  Sender: FDA-Public Use
  Company Number: 2016SCDP000113

PATIENT
  Sex: Female

DRUGS (1)
  1. CARBOPLYINA 3%(MEPIVACAINE HYDROCHLORIDE) INJECTION, 30MG/ML [Suspect]
     Active Substance: MEPIVACAINE HYDROCHLORIDE
     Indication: LOCAL ANAESTHESIA
     Dosage: 1 VIAL, DENTAL
     Route: 004
     Dates: start: 20160418, end: 20160418

REACTIONS (2)
  - Oral discomfort [None]
  - Paraesthesia oral [None]

NARRATIVE: CASE EVENT DATE: 20160419
